FAERS Safety Report 7224597-1 (Version None)
Quarter: 2011Q1

REPORT INFORMATION
  Report Type: 
  Country: None (occurrence: None)
  Receive Date: 20110106
  Receipt Date: 20110106
  Transmission Date: 20110831
  Serious: Yes (Hospitalization)
  Sender: FDA-Public Use
  Company Number: None

PATIENT
  Age: 74 Year
  Sex: Female
  Weight: 103 kg

DRUGS (17)
  1. COUMADIN [Suspect]
     Indication: DEEP VEIN THROMBOSIS
     Dosage: 3 MG DAILY PO CHRONIC
     Route: 048
  2. GLIMEPIRIDE [Concomitant]
  3. CITRUCEL [Concomitant]
  4. ZAROXOLYN [Concomitant]
  5. LOVENOX [Suspect]
     Indication: DEEP VEIN THROMBOSIS
     Dosage: 100MG Q12H SQ RECENT
     Route: 058
  6. ESOMEPRAZOLE [Concomitant]
  7. MICARDIS HCT [Concomitant]
  8. DARVOCET-N 100 [Concomitant]
  9. FUROSEMIDE [Concomitant]
  10. COLACE [Concomitant]
  11. FERROUS SULFATE TAB [Concomitant]
  12. FLONASE [Concomitant]
  13. VIT D [Concomitant]
  14. LUMIGAN [Concomitant]
  15. KLOR-CON [Concomitant]
  16. WELLBUTRIN [Concomitant]
  17. LIBRAX [Concomitant]

REACTIONS (6)
  - COAGULOPATHY [None]
  - DEEP VEIN THROMBOSIS [None]
  - ECCHYMOSIS [None]
  - HAEMATOMA [None]
  - INTERNATIONAL NORMALISED RATIO DECREASED [None]
  - DISEASE RECURRENCE [None]
